FAERS Safety Report 8595945 (Version 2)
Quarter: 2013Q2

REPORT INFORMATION
  Report Type: Spontaneous
  Country: US (occurrence: US)
  Receive Date: 20120605
  Receipt Date: 20130617
  Transmission Date: 20140414
  Serious: Yes (Hospitalization, Disabling)
  Sender: FDA-Public Use
  Company Number: US-ASTRAZENECA-2012SE34432

PATIENT
  Age: 36 Year
  Sex: Female
  Weight: 121.1 kg

DRUGS (4)
  1. NEXIUM [Suspect]
     Indication: GASTROOESOPHAGEAL REFLUX DISEASE
     Dosage: ONCE DAILY
     Route: 048
     Dates: start: 1980
  2. NEXIUM [Suspect]
     Indication: GASTROOESOPHAGEAL REFLUX DISEASE
     Route: 048
     Dates: start: 20130111
  3. ZANTAC [Concomitant]
  4. ALBUTEROL [Concomitant]
     Indication: ASTHMA

REACTIONS (9)
  - Ankle fracture [Unknown]
  - Ill-defined disorder [Unknown]
  - Joint dislocation [Unknown]
  - Asthma [Unknown]
  - Osteoporosis [Unknown]
  - Multiple fractures [Unknown]
  - Wrist fracture [Unknown]
  - Swelling [Unknown]
  - Depression [Unknown]
